FAERS Safety Report 6755435-9 (Version None)
Quarter: 2010Q2

REPORT INFORMATION
  Report Type: 
  Country: None (occurrence: None)
  Receive Date: 20100604
  Receipt Date: 20100524
  Transmission Date: 20101027
  Serious: Yes (Other)
  Sender: FDA-Public Use
  Company Number: US-JNJFOC-20100406032

PATIENT
  Sex: Female
  Weight: 99.34 kg

DRUGS (2)
  1. REMICADE [Suspect]
     Indication: COLITIS
     Route: 042
  2. CIMZIA [Suspect]
     Indication: ARTHRALGIA
     Dates: start: 20100215, end: 20100329

REACTIONS (2)
  - ARTHRALGIA [None]
  - BREAST CANCER [None]
